FAERS Safety Report 7287284-X (Version None)
Quarter: 2011Q1

REPORT INFORMATION
  Report Type: 
  Country: None (occurrence: None)
  Receive Date: 20110211
  Receipt Date: 20110201
  Transmission Date: 20110831
  Serious: Yes (Hospitalization)
  Sender: FDA-Public Use
  Company Number: US-ROCHE-757928

PATIENT
  Sex: Female
  Weight: 69.9 kg

DRUGS (3)
  1. ACTEMRA [Suspect]
     Route: 065
  2. METHOTREXATE [Concomitant]
  3. PREDNISONE [Concomitant]

REACTIONS (3)
  - PORTAL VEIN THROMBOSIS [None]
  - PULMONARY HYPERTENSION [None]
  - VENTRICULAR TACHYCARDIA [None]
